FAERS Safety Report 8533246-1 (Version None)
Quarter: 2012Q3

REPORT INFORMATION
  Report Type: 
  Country: None (occurrence: None)
  Receive Date: 20120724
  Receipt Date: 20120718
  Transmission Date: 20120928
  Serious: Yes (Disabling)
  Sender: FDA-Public Use
  Company Number: JP-009507513-1207JPN007980

PATIENT

DRUGS (2)
  1. JANUVIA [Suspect]
     Indication: DIABETES MELLITUS MANAGEMENT
     Route: 048
     Dates: start: 20101001, end: 20120601
  2. [THERAPY UNSPECIFIED] [Concomitant]
     Dosage: DOSAGE IS UNCERTAIN DURING A DAY.
     Route: 048

REACTIONS (1)
  - INTERSTITIAL LUNG DISEASE [None]
